FAERS Safety Report 5879588-X (Version None)
Quarter: 2008Q3

REPORT INFORMATION
  Report Type: 
  Country: None (occurrence: None)
  Receive Date: 20080912
  Receipt Date: 20080904
  Transmission Date: 20090109
  Serious: Yes (Other)
  Sender: FDA-Public Use
  Company Number: US-JNJFOC-20080901684

PATIENT
  Age: 69 Year
  Sex: Male
  Weight: 79.38 kg

DRUGS (5)
  1. MOTRIN IB [Suspect]
     Route: 048
  2. MOTRIN IB [Suspect]
     Indication: ARTHRALGIA
     Dosage: 400MG-600MG 5 OUT OF 7 DAYS PER WEEK
     Route: 048
  3. IBUPROFEN [Suspect]
     Indication: PAIN
  4. SIMVASTATIN [Concomitant]
     Indication: BLOOD CHOLESTEROL INCREASED
     Route: 048
  5. VASOTEC [Concomitant]
     Indication: HYPERTENSION
     Route: 048

REACTIONS (4)
  - LIVER FUNCTION TEST ABNORMAL [None]
  - NAIL DISCOLOURATION [None]
  - RASH [None]
  - WEIGHT DECREASED [None]
